FAERS Safety Report 9169892 (Version 1)
Quarter: 2013Q1

REPORT INFORMATION
  Report Type: Spontaneous
  Country: US (occurrence: None)
  Receive Date: 20130314
  Receipt Date: 20130314
  Transmission Date: 20140127
  Serious: Yes (Life-Threatening, Hospitalization)
  Sender: FDA-Public Use
  Company Number: None

PATIENT
  Age: 67 Year
  Sex: Male
  Weight: 89.81 kg

DRUGS (1)
  1. TEMODAR [Suspect]
     Indication: GLIOBLASTOMA MULTIFORME
     Dates: start: 20130101, end: 20130217

REACTIONS (9)
  - Pancytopenia [None]
  - Pyrexia [None]
  - Hypotension [None]
  - Sepsis [None]
  - Escherichia sepsis [None]
  - Staphylococcal sepsis [None]
  - Pancytopenia [None]
  - Clostridium difficile colitis [None]
  - Aplastic anaemia [None]
